FAERS Safety Report 7180486-2 (Version None)
Quarter: 2010Q4

REPORT INFORMATION
  Report Type: 
  Country: None (occurrence: None)
  Receive Date: 20101123
  Receipt Date: 20100812
  Transmission Date: 20110411
  Serious: No
  Sender: FDA-Public Use
  Company Number: 017138

PATIENT
  Sex: Female
  Weight: 71.7 kg

DRUGS (4)
  1. CIMZIA [Suspect]
     Indication: CROHN'S DISEASE
     Dosage: (200 MG, TWO SHOTS, INITIAL DOSE SUBCUTANEOUS)
     Route: 058
     Dates: start: 20100730, end: 20100730
  2. REMICADE [Suspect]
     Indication: CROHN'S DISEASE
     Dosage: (UNKNOWN DOSE)
  3. ALBUTEROL [Concomitant]
  4. PERCOCET [Concomitant]

REACTIONS (8)
  - CONSTIPATION [None]
  - COUGH [None]
  - DYSPNOEA [None]
  - FATIGUE [None]
  - MALAISE [None]
  - PAIN [None]
  - PALLOR [None]
  - PARAESTHESIA [None]
